FAERS Safety Report 5899575-5 (Version None)
Quarter: 2008Q3

REPORT INFORMATION
  Report Type: 
  Country: None (occurrence: None)
  Receive Date: 20080926
  Receipt Date: 20080919
  Transmission Date: 20090109
  Serious: Yes (Other)
  Sender: FDA-Public Use
  Company Number: PHHY2008DE22322

PATIENT
  Sex: Female
  Weight: 79 kg

DRUGS (1)
  1. EXFORGE [Suspect]
     Indication: ESSENTIAL HYPERTENSION
     Dosage: UNK
     Dates: start: 20080228, end: 20080305

REACTIONS (3)
  - CIRCULATORY COLLAPSE [None]
  - DIZZINESS [None]
  - SYNCOPE [None]
